FAERS Safety Report 17063442 (Version 2)
Quarter: 2020Q1

REPORT INFORMATION
  Report Type: Report from Study
  Country: US (occurrence: US)
  Receive Date: 20191122
  Receipt Date: 20200117
  Transmission Date: 20200409
  Serious: Yes (Death, Hospitalization, Other)
  Sender: FDA-Public Use
  Company Number: NVSC2019US044238

PATIENT
  Sex: Male

DRUGS (4)
  1. ZORTRESS [Suspect]
     Active Substance: EVEROLIMUS
     Indication: PRODUCT USED FOR UNKNOWN INDICATION
     Dosage: 0.75 MG
     Route: 048
  2. MORPHINE [Concomitant]
     Active Substance: MORPHINE
     Indication: PAIN
     Dosage: 20 MG/5 ML SOLUTION, 10-20 MG, Q3H PRN
     Route: 048
     Dates: start: 20191001, end: 20191011
  3. TRANSDERM SCOP [Concomitant]
     Active Substance: SCOPOLAMINE
     Indication: PRODUCT USED FOR UNKNOWN INDICATION
     Dosage: 1 DF, Q72H
     Route: 065
     Dates: start: 20191001
  4. LORAZEPAM. [Concomitant]
     Active Substance: LORAZEPAM
     Indication: ANXIETY
     Dosage: 0.5 ML, PRN Q3H
     Route: 048

REACTIONS (19)
  - Dysphagia [Unknown]
  - Failure to thrive [Unknown]
  - Pleural effusion [Unknown]
  - Hypopnoea [Unknown]
  - Acute left ventricular failure [Unknown]
  - Asthenia [Unknown]
  - Diabetes mellitus [Unknown]
  - Pneumonitis [Unknown]
  - Dehydration [Unknown]
  - Cachexia [Unknown]
  - Hypoxia [Unknown]
  - Death [Fatal]
  - Mental status changes [Unknown]
  - Atrial tachycardia [Unknown]
  - Dyspnoea [Unknown]
  - Chronic kidney disease [Unknown]
  - Brain natriuretic peptide increased [Unknown]
  - Lung cancer metastatic [Unknown]
  - Troponin increased [Unknown]
